FAERS Safety Report 4825934-5 (Version None)
Quarter: 2005Q4

REPORT INFORMATION
  Report Type: 
  Country: None (occurrence: None)
  Receive Date: 20051110
  Receipt Date: 20051110
  Transmission Date: 20060501
  Serious: Yes (Life-Threatening, Hospitalization)
  Sender: FDA-Public Use
  Company Number: None

PATIENT
  Age: 4 Year
  Sex: Male

DRUGS (4)
  1. CISPLATIN [Suspect]
     Indication: NEUROBLASTOMA
     Dosage: 33 MGS X 4 DOSES IV
     Route: 042
     Dates: start: 20050822
  2. CISPLATIN [Suspect]
     Indication: NEUROBLASTOMA
     Dosage: 33 MGS X 4 DOSES IV
     Route: 042
     Dates: start: 20050823
  3. CISPLATIN [Suspect]
     Indication: NEUROBLASTOMA
     Dosage: 33 MGS X 4 DOSES IV
     Route: 042
     Dates: start: 20050824
  4. CISPLATIN [Suspect]
     Indication: NEUROBLASTOMA
     Dosage: 33 MGS X 4 DOSES IV
     Route: 042
     Dates: start: 20050825

REACTIONS (22)
  - ASCITES [None]
  - BIOPSY KIDNEY ABNORMAL [None]
  - BLOOD CHOLESTEROL INCREASED [None]
  - BLOOD TRIGLYCERIDES INCREASED [None]
  - COAGULOPATHY [None]
  - DRUG TOXICITY [None]
  - FEBRILE NEUTROPENIA [None]
  - GENE MUTATION [None]
  - HAEMOGLOBIN DECREASED [None]
  - HIGH DENSITY LIPOPROTEIN DECREASED [None]
  - HYPERTENSION [None]
  - KIDNEY ENLARGEMENT [None]
  - LIPOPROTEIN (A) INCREASED [None]
  - MALAISE [None]
  - MALIGNANT HYPERTENSION [None]
  - NEPHROPATHY [None]
  - PITTING OEDEMA [None]
  - PLATELET COUNT DECREASED [None]
  - RENAL DISORDER [None]
  - SWELLING FACE [None]
  - THROMBOTIC MICROANGIOPATHY [None]
  - THROMBOTIC THROMBOCYTOPENIC PURPURA [None]
